FAERS Safety Report 23154025 (Version 1)
Quarter: 2023Q4

REPORT INFORMATION
  Report Type: Report from Study
  Country: US (occurrence: US)
  Receive Date: 20231107
  Receipt Date: 20231107
  Transmission Date: 20240110
  Serious: Yes (Hospitalization)
  Sender: FDA-Public Use
  Company Number: US-ABBVIE-5481256

PATIENT
  Sex: Male
  Weight: 68.945 kg

DRUGS (1)
  1. CREON [Suspect]
     Active Substance: PANCRELIPASE AMYLASE\PANCRELIPASE LIPASE\PANCRELIPASE PROTEASE
     Indication: Pancreatic failure
     Dosage: START DATE TEXT: JUN OR JUL 2023
     Route: 048
     Dates: start: 202306, end: 20231029

REACTIONS (4)
  - Weight decreased [Unknown]
  - Weight increased [Recovered/Resolved]
  - Weight gain poor [Recovered/Resolved]
  - Papule [Recovered/Resolved]

NARRATIVE: CASE EVENT DATE: 20230101
